FAERS Safety Report 8484939-6 (Version None)
Quarter: 2012Q3

REPORT INFORMATION
  Report Type: 
  Country: None (occurrence: None)
  Receive Date: 20120703
  Receipt Date: 20120626
  Transmission Date: 20120928
  Serious: Yes (Hospitalization, Other)
  Sender: FDA-Public Use
  Company Number: JP-ASTELLAS-2012US005437

PATIENT
  Sex: Male

DRUGS (2)
  1. TARCEVA [Suspect]
     Indication: LUNG ADENOCARCINOMA
     Dosage: 150 MG, UID/QD
     Route: 048
     Dates: start: 20101207, end: 20110622
  2. TARCEVA [Suspect]
     Dosage: 150 MG, QOD
     Route: 048
     Dates: start: 20110629

REACTIONS (2)
  - ULCERATIVE KERATITIS [None]
  - RASH [None]
